FAERS Safety Report 25181010 (Version 2)
Quarter: 2025Q2

REPORT INFORMATION
  Report Type: Report from Study
  Country: US (occurrence: US)
  Receive Date: 20250409
  Receipt Date: 20250416
  Transmission Date: 20250717
  Serious: Yes (Other)
  Sender: ALEXION PHARMACEUTICALS
  Company Number: US-AstraZeneca-CH-00844149A

PATIENT

DRUGS (2)
  1. ULTOMIRIS [Suspect]
     Active Substance: RAVULIZUMAB-CWVZ
     Indication: Myasthenia gravis
     Route: 065
  2. HUMAN IMMUNOGLOBULIN G [Concomitant]
     Active Substance: HUMAN IMMUNOGLOBULIN G

REACTIONS (14)
  - Sepsis [Recovered/Resolved]
  - Fatigue [Unknown]
  - Asthenia [Unknown]
  - Therapeutic product effect delayed [Unknown]
  - Depressed mood [Unknown]
  - Weight decreased [Unknown]
  - Weight gain poor [Unknown]
  - Mastication disorder [Unknown]
  - Eating disorder [Unknown]
  - Dyspepsia [Unknown]
  - Hyperhidrosis [Unknown]
  - Insomnia [Unknown]
  - Therapeutic response shortened [Unknown]
  - Malaise [Unknown]
